FAERS Safety Report 17866884 (Version 1)
Quarter: 2020Q2

REPORT INFORMATION
  Report Type: Spontaneous
  Country: SA (occurrence: SA)
  Receive Date: 20200605
  Receipt Date: 20200605
  Transmission Date: 20200714
  Serious: Yes (Other)
  Sender: FDA-Public Use
  Company Number: SA-009507513-2005SAU008977

PATIENT
  Age: 40 Year
  Sex: Male

DRUGS (11)
  1. LABETALOL [Concomitant]
     Active Substance: LABETALOL\LABETALOL HYDROCHLORIDE
     Dosage: 10 MG
     Route: 042
  2. ACETAMINOPHEN. [Concomitant]
     Active Substance: ACETAMINOPHEN
     Dosage: 1000 MG
     Route: 042
  3. DEXAMETHASONE. [Suspect]
     Active Substance: DEXAMETHASONE
     Indication: SEIZURE PROPHYLAXIS
     Dosage: 4 MG EVERY 6 HOURS
     Route: 048
  4. PHENYTOIN. [Interacting]
     Active Substance: PHENYTOIN
     Indication: SEIZURE PROPHYLAXIS
     Dosage: 100 MG EVERY 8 HOURS
     Route: 042
  5. PHENYTOIN. [Interacting]
     Active Substance: PHENYTOIN
     Dosage: 100 MG TWICE DAILY
     Route: 042
  6. PHENYTOIN. [Interacting]
     Active Substance: PHENYTOIN
     Dosage: 100 MG ONCE DAILY
     Route: 042
  7. PANTOPRAZOLE [Concomitant]
     Active Substance: PANTOPRAZOLE
     Dosage: 40 MG DAILY
     Route: 048
  8. DEXAMETHASONE. [Interacting]
     Active Substance: DEXAMETHASONE
     Dosage: 4 MG EVERY 8 HOURS
     Route: 048
  9. DEXAMETHASONE. [Interacting]
     Active Substance: DEXAMETHASONE
     Dosage: 4 MG EVERY 12 HOURS
     Route: 048
  10. AMLODIPINE [Concomitant]
     Active Substance: AMLODIPINE BESYLATE
     Dosage: 5 MG DAILY
     Route: 048
  11. DEXAMETHASONE. [Interacting]
     Active Substance: DEXAMETHASONE
     Dosage: 2 MG EVERY 12 HOURS
     Route: 048

REACTIONS (2)
  - Drug interaction [Unknown]
  - Thrombocytopenia [Recovered/Resolved]
